FAERS Safety Report 17378297 (Version 1)
Quarter: 2020Q1

REPORT INFORMATION
  Report Type: Spontaneous
  Country: US (occurrence: US)
  Receive Date: 20200206
  Receipt Date: 20200206
  Transmission Date: 20200409
  Serious: No
  Sender: FDA-Public Use
  Company Number: US-VERTEX PHARMACEUTICALS-2018-000303

PATIENT
  Sex: Male
  Weight: 86 kg

DRUGS (2)
  1. ORKAMBI [Suspect]
     Active Substance: IVACAFTOR\LUMACAFTOR
     Indication: CYSTIC FIBROSIS
     Dosage: 200/125 MG, BID
     Route: 048
     Dates: start: 201707, end: 201912
  2. TOBRAMYCIN. [Concomitant]
     Active Substance: TOBRAMYCIN
     Dosage: 300 MG, BID, VIA NEBULIZER, 28 DAYS ON AND 28 DAYS OFF
     Route: 055

REACTIONS (12)
  - Euphoric mood [Not Recovered/Not Resolved]
  - Malaise [Unknown]
  - Memory impairment [Unknown]
  - Impaired driving ability [Not Recovered/Not Resolved]
  - Dyspepsia [Recovered/Resolved]
  - Feeling abnormal [Not Recovered/Not Resolved]
  - Vomiting [Recovered/Resolved]
  - Infection [Recovering/Resolving]
  - Bradyphrenia [Not Recovered/Not Resolved]
  - Staring [Not Recovered/Not Resolved]
  - Dizziness [Not Recovered/Not Resolved]
  - Gastroenteritis viral [Recovered/Resolved]

NARRATIVE: CASE EVENT DATE: 2017
